FAERS Safety Report 12912952 (Version 3)
Quarter: 2017Q1

REPORT INFORMATION
  Report Type: Spontaneous
  Country: DK (occurrence: DK)
  Receive Date: 20161104
  Receipt Date: 20170104
  Transmission Date: 20170428
  Serious: Yes (Other)
  Sender: FDA-Public Use
  Company Number: DK-PFIZER INC-2016508966

PATIENT
  Sex: Female

DRUGS (6)
  1. HYDROCORTISONE ACETATE. [Suspect]
     Active Substance: HYDROCORTISONE ACETATE
     Dosage: 25 MG, 3X/DAY
     Dates: start: 2010
  2. CODEINE [Suspect]
     Active Substance: CODEINE
     Dosage: 25 MG, 4X/DAY
     Dates: start: 2010
  3. LYRICA [Suspect]
     Active Substance: PREGABALIN
     Dosage: 75 MG, 4X/DAY
     Dates: start: 2010
  4. RIVOTRIL [Suspect]
     Active Substance: CLONAZEPAM
     Dosage: 0.5 MG MAXIMUM 4 TIMES DAILYAS NEEDED
     Route: 048
     Dates: start: 2010, end: 2011
  5. PAMOL [Suspect]
     Active Substance: ACETAMINOPHEN
     Dosage: 1 G, 4X/DAY
     Dates: start: 2010
  6. RIVOTRIL [Suspect]
     Active Substance: CLONAZEPAM
     Indication: STRESS
     Dosage: UNK, AS NEEDED
     Route: 048
     Dates: start: 1990

REACTIONS (8)
  - Overdose [Unknown]
  - Intentional product misuse [Unknown]
  - Off label use [Unknown]
  - Road traffic accident [Unknown]
  - Brain injury [Unknown]
  - Loss of consciousness [Recovered/Resolved]
  - Dependence [Recovered/Resolved]
  - Fall [Unknown]

NARRATIVE: CASE EVENT DATE: 20101116
